FAERS Safety Report 12207301 (Version 1)
Quarter: 2016Q1

REPORT INFORMATION
  Report Type: Spontaneous
  Country: US (occurrence: US)
  Receive Date: 20160324
  Receipt Date: 20160324
  Transmission Date: 20160526
  Serious: Yes (Other)
  Sender: FDA-Public Use
  Company Number: US-TEVA-646120USA

PATIENT
  Age: 29 Year
  Sex: Male

DRUGS (3)
  1. BUPROPION. [Suspect]
     Active Substance: BUPROPION
     Indication: DEPRESSION
     Dosage: 150 MILLIGRAM DAILY;
     Route: 065
  2. DOXYCYCLINE. [Suspect]
     Active Substance: DOXYCYCLINE
     Indication: ACNE
     Route: 065
  3. OXYCODONE, ASPIRIN [Concomitant]
     Indication: BACK PAIN
     Dosage: ASPIRIN 325MG AND OXYCODONE 5 MG; ONCE A WEEK
     Route: 048

REACTIONS (1)
  - Drug-induced liver injury [Recovered/Resolved]
